FAERS Safety Report 6866726-5 (Version None)
Quarter: 2010Q3

REPORT INFORMATION
  Report Type: 
  Country: None (occurrence: None)
  Receive Date: 20100722
  Receipt Date: 20100607
  Transmission Date: 20110219
  Serious: No
  Sender: FDA-Public Use
  Company Number: PHHY2010GB25801

PATIENT
  Sex: Female
  Weight: 80 kg

DRUGS (4)
  1. TASIGNA [Suspect]
     Indication: CHRONIC MYELOID LEUKAEMIA
     Dosage: 400 MG, BID
     Route: 048
  2. CLOPIDOGREL [Concomitant]
     Dosage: UNK
     Route: 048
  3. SIMVASTATIN [Concomitant]
     Dosage: UNK
     Route: 048
  4. LOSARTAN POSTASSIUM [Concomitant]
     Dosage: UNK
     Route: 048

REACTIONS (1)
  - NEUTROPENIA [None]
